FAERS Safety Report 15350867 (Version 2)
Quarter: 2018Q4

REPORT INFORMATION
  Report Type: Report from Study
  Country: US (occurrence: US)
  Receive Date: 20180905
  Receipt Date: 20181023
  Transmission Date: 20190204
  Serious: Yes (Hospitalization)
  Sender: FDA-Public Use
  Company Number: US-HORIZON-PRE-0397-2018

PATIENT
  Age: 61 Year
  Sex: Male
  Weight: 72.02 kg

DRUGS (2)
  1. INCB039110 OR PLACEBO [Suspect]
     Active Substance: ITACITINIB
     Indication: ACUTE GRAFT VERSUS HOST DISEASE
     Dosage: FIRST DOSE OF 200 MG QD ON 14-APR-2018
     Dates: start: 20180414, end: 20180525
  2. PREDNISONE. [Suspect]
     Active Substance: PREDNISONE
     Indication: ACUTE GRAFT VERSUS HOST DISEASE
     Dosage: 10 MG QOD FROM 10-JUN-2018 UNTIL 30-JUN-2018
     Route: 048
     Dates: start: 20180418, end: 20180630

REACTIONS (2)
  - Pneumonia cytomegaloviral [Recovered/Resolved]
  - Febrile neutropenia [Recovered/Resolved]

NARRATIVE: CASE EVENT DATE: 20180614
